FAERS Safety Report 8595835-8 (Version None)
Quarter: 2012Q3

REPORT INFORMATION
  Report Type: 
  Country: None (occurrence: None)
  Receive Date: 20120815
  Receipt Date: 19881212
  Transmission Date: 20120928
  Serious: Yes (Hospitalization)
  Sender: FDA-Public Use
  Company Number: US-ROCHE-1099928

PATIENT
  Sex: Male

DRUGS (5)
  1. ACTIVASE [Suspect]
     Indication: ACUTE MYOCARDIAL INFARCTION
  2. ASPIRIN [Concomitant]
  3. HEPARIN [Concomitant]
  4. QUINIDINE HCL [Concomitant]
  5. ACTIVASE [Suspect]
     Indication: ARTERIOSCLEROSIS
     Dosage: OVER 3 HOURS
     Route: 042

REACTIONS (4)
  - VENTRICULAR TACHYCARDIA [None]
  - HYPOVOLAEMIA [None]
  - CHEST PAIN [None]
  - VENTRICULAR EXTRASYSTOLES [None]
